FAERS Safety Report 5126679-7 (Version None)
Quarter: 2006Q4

REPORT INFORMATION
  Report Type: 
  Country: None (occurrence: None)
  Receive Date: 20061012
  Receipt Date: 20061012
  Transmission Date: 20070319
  Serious: Yes (Hospitalization)
  Sender: FDA-Public Use
  Company Number: None

PATIENT
  Age: 69 Year
  Sex: Female

DRUGS (2)
  1. ZYVOX [Suspect]
     Indication: DEVICE RELATED INFECTION
     Dosage: 600MG  Q 12 HR    IV
     Route: 042
     Dates: start: 20050730, end: 20050907
  2. ZYVOX [Suspect]
     Indication: STAPHYLOCOCCAL INFECTION
     Dosage: 600MG  Q 12 HR    IV
     Route: 042
     Dates: start: 20050730, end: 20050907

REACTIONS (1)
  - PANCYTOPENIA [None]
